FAERS Safety Report 7481066-1 (Version None)
Quarter: 2011Q2

REPORT INFORMATION
  Report Type: 
  Country: None (occurrence: None)
  Receive Date: 20110516
  Receipt Date: 20090401
  Transmission Date: 20111010
  Serious: Yes (Death, Hospitalization, Other)
  Sender: FDA-Public Use
  Company Number: US-BAYER-200922769NA

PATIENT
  Age: 71 Year
  Sex: Female
  Weight: 65.76 kg

DRUGS (23)
  1. TRASYLOL [Suspect]
     Indication: CARDIAC OPERATION
     Dosage: UNK
     Route: 042
     Dates: start: 19990414
  2. LANOXIN [Concomitant]
     Dosage: 0.125 MICROGRAMS UNK, UNK
  3. DOPMIN [DOPAMINE] [Concomitant]
     Dosage: UNK
     Route: 042
     Dates: start: 19990414
  4. EPINEPHRINE [Concomitant]
     Dosage: UNK
     Route: 042
     Dates: start: 19990414
  5. COUMADIN [Concomitant]
     Dosage: UNK
     Route: 048
     Dates: start: 19990501
  6. RED BLOOD CELLS [Concomitant]
  7. TRASYLOL [Suspect]
     Indication: AORTIC VALVE REPLACEMENT
  8. MORPHINE [Concomitant]
     Route: 048
  9. FRESH FROZEN PLASMA [Concomitant]
  10. PLATELETS [Concomitant]
  11. GLUCOTROL [Concomitant]
     Dosage: 10 MG, UNK
     Route: 048
  12. CARDIZEM [Concomitant]
     Dosage: 240 MG, UNK
     Route: 048
  13. LIDOCAINE [Concomitant]
     Route: 048
  14. VERSED [Concomitant]
     Dosage: UNK
     Route: 042
     Dates: start: 19990414
  15. TRASYLOL [Suspect]
     Indication: MITRAL VALVE REPLACEMENT
  16. COZAAR [Concomitant]
     Dosage: 50 MG, UNK
     Route: 048
  17. AMBIEN [Concomitant]
     Route: 048
  18. ZOCOR [Concomitant]
     Route: 048
  19. LEVOXYL [Concomitant]
     Route: 048
  20. HEPARIN [Concomitant]
     Dosage: UNK
     Route: 042
     Dates: start: 19990414
  21. PROTAMINE SULFATE [Concomitant]
     Dosage: UNK
     Route: 042
     Dates: start: 19990414
  22. DYAZIDE [Concomitant]
     Route: 048
  23. PREVACID [Concomitant]
     Dosage: UNK
     Route: 048
     Dates: start: 19990501

REACTIONS (10)
  - STRESS [None]
  - FEAR [None]
  - EMOTIONAL DISTRESS [None]
  - RENAL FAILURE [None]
  - ANHEDONIA [None]
  - INJURY [None]
  - RENAL IMPAIRMENT [None]
  - RENAL INJURY [None]
  - PAIN [None]
  - ANXIETY [None]
